FAERS Safety Report 22079671 (Version 1)
Quarter: 2023Q1

REPORT INFORMATION
  Report Type: Report from Study
  Country: US (occurrence: None)
  Receive Date: 20230309
  Receipt Date: 20230309
  Transmission Date: 20230417
  Serious: Yes (Death)
  Sender: FDA-Public Use
  Company Number: 2023A055064

PATIENT
  Sex: Male
  Weight: 84.4 kg

DRUGS (18)
  1. IMFINZI [Suspect]
     Active Substance: DURVALUMAB
     Indication: Neuroendocrine carcinoma
     Route: 042
  2. ADVAIR HFA [Concomitant]
     Active Substance: FLUTICASONE PROPIONATE\SALMETEROL XINAFOATE
  3. ALBUTEROL [Concomitant]
     Active Substance: ALBUTEROL
  4. AMLODIPINE [Concomitant]
     Active Substance: AMLODIPINE BESYLATE
  5. ASPIRIN [Concomitant]
     Active Substance: ASPIRIN
  6. ATORVASTATIN [Concomitant]
     Active Substance: ATORVASTATIN
  7. DICLOFENAC [Concomitant]
     Active Substance: DICLOFENAC
  8. DORZOLAMIDE [Concomitant]
     Active Substance: DORZOLAMIDE
  9. ELIQUIS [Concomitant]
     Active Substance: APIXABAN
  10. INCRUSE ELLIPTA [Concomitant]
     Active Substance: UMECLIDINIUM BROMIDE
  11. LATANOPROST [Concomitant]
     Active Substance: LATANOPROST
  12. LISINOPRIL [Concomitant]
     Active Substance: LISINOPRIL
  13. MELOXICAM [Concomitant]
     Active Substance: MELOXICAM
  14. METOPROLOL [Concomitant]
     Active Substance: METOPROLOL
  15. PANTOPRAZOLE [Concomitant]
     Active Substance: PANTOPRAZOLE
  16. PENNSAID [Concomitant]
     Active Substance: DICLOFENAC SODIUM
  17. TAB-A-VITE [Concomitant]
  18. TAMSULOSIN [Concomitant]
     Active Substance: TAMSULOSIN

REACTIONS (1)
  - Death [Fatal]
